FAERS Safety Report 8680427 (Version 3)
Quarter: 2012Q4

REPORT INFORMATION
  Report Type: Report from Study
  Country: US (occurrence: US)
  Receive Date: 20120724
  Receipt Date: 20120829
  Transmission Date: 20130627
  Serious: Yes (Hospitalization, Other)
  Sender: FDA-Public Use
  Company Number: US-ABBOTT-12P-163-0956576-00

PATIENT
  Age: 28 None
  Sex: Female
  Weight: 136.2 kg

DRUGS (9)
  1. HUMIRA 40 MG/0.8 ML PEN [Suspect]
     Indication: RHEUMATOID ARTHRITIS
     Dates: start: 201112, end: 20120713
  2. HUMIRA 40 MG/0.8 ML PEN [Suspect]
     Route: 058
  3. EFFEXOR [Concomitant]
     Indication: DEPRESSION
  4. CELEXA [Concomitant]
     Indication: DEPRESSION
  5. FOLIC ACID [Concomitant]
     Indication: VITAMIN SUPPLEMENTATION
  6. HYDROCHLORAQUINE [Concomitant]
     Indication: RHEUMATOID ARTHRITIS
  7. PERCOCET [Concomitant]
     Indication: RHEUMATOID ARTHRITIS
  8. MORPHINE [Concomitant]
     Indication: RHEUMATOID ARTHRITIS
  9. METHAZINE [Concomitant]
     Indication: HYPERTHYROIDISM

REACTIONS (6)
  - Arthropod bite [Recovering/Resolving]
  - Breast mass [Not Recovered/Not Resolved]
  - Rash [Not Recovered/Not Resolved]
  - Breast cellulitis [Not Recovered/Not Resolved]
  - Cellulitis [Unknown]
  - Hepatic mass [Unknown]
